FAERS Safety Report 4581094-X (Version None)
Quarter: 2005Q1

REPORT INFORMATION
  Report Type: 
  Country: None (occurrence: None)
  Receive Date: 20050214
  Receipt Date: 20040804
  Transmission Date: 20050727
  Serious: Yes (Disabling)
  Sender: FDA-Public Use
  Company Number: US-GLAXOSMITHKLINE-A0520973A

PATIENT
  Age: 32 Year
  Sex: Female

DRUGS (2)
  1. LAMICTAL [Suspect]
     Indication: BIPOLAR DISORDER
     Route: 048
     Dates: start: 20040723, end: 20040730
  2. XANAX [Concomitant]
     Dosage: .25MG AS REQUIRED
     Route: 048

REACTIONS (4)
  - BODY TEMPERATURE INCREASED [None]
  - EYE SWELLING [None]
  - PRURITUS [None]
  - RASH [None]
